FAERS Safety Report 10173858 (Version 1)
Quarter: 2014Q2

REPORT INFORMATION
  Report Type: Spontaneous
  Country: US (occurrence: None)
  Receive Date: 20140514
  Receipt Date: 20140514
  Transmission Date: 20141212
  Serious: No
  Sender: FDA-Public Use
  Company Number: None

PATIENT
  Age: 26 Year
  Sex: Male
  Weight: 110.22 kg

DRUGS (2)
  1. CELEXA [Suspect]
     Indication: DEPRESSION
     Dosage: 1, ONCE DAILY, TAKEN BY MOUTH
     Route: 048
     Dates: start: 20140509, end: 20140510
  2. CELEXA [Suspect]
     Indication: ANXIETY
     Dosage: 1, ONCE DAILY, TAKEN BY MOUTH
     Route: 048
     Dates: start: 20140509, end: 20140510

REACTIONS (6)
  - Dizziness [None]
  - Dyspnoea [None]
  - Muscle tightness [None]
  - Hyperhidrosis [None]
  - Heart rate increased [None]
  - Sexual dysfunction [None]
